FAERS Safety Report 7673439-9 (Version None)
Quarter: 2011Q3

REPORT INFORMATION
  Report Type: 
  Country: None (occurrence: None)
  Receive Date: 20110810
  Receipt Date: 20110808
  Transmission Date: 20111222
  Serious: No
  Sender: FDA-Public Use
  Company Number: US-PFIZER INC-2011181483

PATIENT
  Sex: Female
  Weight: 61.224 kg

DRUGS (1)
  1. LYRICA [Suspect]
     Indication: HERPES ZOSTER
     Dosage: 75 MG, 2X/DAY
     Route: 048
     Dates: start: 20110801

REACTIONS (6)
  - NECK PAIN [None]
  - INSOMNIA [None]
  - POLLAKIURIA [None]
  - KYPHOSIS [None]
  - DIZZINESS [None]
  - DRY MOUTH [None]
